FAERS Safety Report 4629117-3 (Version None)
Quarter: 2005Q2

REPORT INFORMATION
  Report Type: 
  Country: None (occurrence: None)
  Receive Date: 20050404
  Receipt Date: 20050404
  Transmission Date: 20051028
  Serious: Yes (Life-Threatening)
  Sender: FDA-Public Use
  Company Number: None

PATIENT
  Age: 60 Year
  Sex: Female
  Weight: 65.318 kg

DRUGS (10)
  1. SANDOSTATIN [Suspect]
     Indication: RECTAL CANCER
     Dosage: 30MG
     Dates: start: 20050126
  2. FLUOROURACIL [Suspect]
     Dosage: 1700MG OVER 24H X 4 DAYS
  3. PLACEBO [Suspect]
  4. RADIATION [Suspect]
  5. WELLBUTRIN [Concomitant]
  6. ALPRAZOLAM [Concomitant]
  7. QUININE SULFATE [Concomitant]
  8. LISINOPRIL [Concomitant]
  9. PIROXICAM [Concomitant]
  10. HYDROCHLOROTHIAZIDE [Concomitant]

REACTIONS (6)
  - ANXIETY [None]
  - GRAND MAL CONVULSION [None]
  - HEADACHE [None]
  - INJECTION SITE ERYTHEMA [None]
  - INJECTION SITE SWELLING [None]
  - RESPIRATORY ARREST [None]
